FAERS Safety Report 25300301 (Version 1)
Quarter: 2025Q2

REPORT INFORMATION
  Report Type: Spontaneous
  Country: US (occurrence: US)
  Receive Date: 20250512
  Receipt Date: 20250512
  Transmission Date: 20250716
  Serious: Yes (Other)
  Sender: Unknown Manufacturer
  Company Number: US-KOANAAP-SML-US-2025-00249

PATIENT
  Age: 42 Year
  Sex: Male

DRUGS (5)
  1. IRINOTECAN [Suspect]
     Active Substance: IRINOTECAN
     Indication: Signet-ring cell carcinoma
  2. LEUCOVORIN [Suspect]
     Active Substance: LEUCOVORIN\LEUCOVORIN CALCIUM
     Indication: Signet-ring cell carcinoma
  3. FLUOROURACIL [Suspect]
     Active Substance: FLUOROURACIL
     Indication: Signet-ring cell carcinoma
  4. OXALIPLATIN [Suspect]
     Active Substance: OXALIPLATIN
     Indication: Signet-ring cell carcinoma
  5. BEVACIZUMAB [Suspect]
     Active Substance: BEVACIZUMAB
     Indication: Signet-ring cell carcinoma

REACTIONS (1)
  - Drug ineffective [Unknown]
